FAERS Safety Report 6182773-3 (Version None)
Quarter: 2009Q2

REPORT INFORMATION
  Report Type: 
  Country: None (occurrence: None)
  Receive Date: 20090507
  Receipt Date: 20090507
  Transmission Date: 20091009
  Serious: Yes (Hospitalization)
  Sender: FDA-Public Use
  Company Number: DE-PFIZER INC-2009154009

PATIENT

DRUGS (8)
  1. SULFASALAZINE [Suspect]
     Indication: OSTEOARTHRITIS
     Dosage: 500 MG, 1X/DAY
     Route: 048
     Dates: start: 20080511, end: 20080517
  2. SULFASALAZINE [Suspect]
     Dosage: 500 MG, 2X/DAY
     Route: 048
     Dates: start: 20080518, end: 20080524
  3. SULFASALAZINE [Suspect]
     Dosage: 500 MG, 3X/DAY
     Route: 048
     Dates: start: 20080525, end: 20080531
  4. SULFASALAZINE [Suspect]
     Dosage: 500 MG, 4X/DAY
     Route: 048
     Dates: start: 20080601, end: 20080607
  5. SULFASALAZINE [Suspect]
     Dosage: 500 MG, 3X/DAY
     Route: 048
     Dates: start: 20080608, end: 20080614
  6. SULFASALAZINE [Suspect]
     Dosage: 500 MG, 2X/DAY
     Route: 048
     Dates: start: 20080615, end: 20080621
  7. SULFASALAZINE [Suspect]
     Dosage: 500 MG, 1X/DAY
     Route: 048
     Dates: start: 20080622
  8. MELOXICAM [Suspect]
     Indication: OSTEOARTHRITIS
     Dosage: 15 MG, 2X/DAY
     Route: 048
     Dates: start: 20070801

REACTIONS (1)
  - GASTRITIS [None]
